FAERS Safety Report 9868195 (Version 1)
Quarter: 2014Q1

REPORT INFORMATION
  Report Type: Report from Study
  Country: BR (occurrence: BR)
  Receive Date: 20140204
  Receipt Date: 20140204
  Transmission Date: 20141002
  Serious: Yes (Death, Other)
  Sender: FDA-Public Use
  Company Number: PHHY2014BR012101

PATIENT
  Sex: Male
  Weight: 93 kg

DRUGS (2)
  1. OCTREOTIDE [Suspect]
     Indication: PANCREATIC CARCINOMA METASTATIC
     Dosage: 1 DF, EVERY 28 DAYS.
  2. XELODA [Concomitant]

REACTIONS (2)
  - Metastases to liver [Fatal]
  - Cardiopulmonary failure [Fatal]
